FAERS Safety Report 6864910-8 (Version None)
Quarter: 2010Q3

REPORT INFORMATION
  Report Type: 
  Country: None (occurrence: None)
  Receive Date: 20100721
  Receipt Date: 20080408
  Transmission Date: 20110219
  Serious: No
  Sender: FDA-Public Use
  Company Number: US-PFIZER INC-2008031312

PATIENT
  Sex: Male
  Weight: 81.6 kg

DRUGS (5)
  1. CHANTIX [Suspect]
     Indication: SMOKING CESSATION THERAPY
     Dates: start: 20071201, end: 20080301
  2. LEVOTHYROXINE SODIUM [Concomitant]
     Indication: HYPOTHYROIDISM
  3. PROZAC [Concomitant]
     Indication: ANXIETY
  4. PROZAC [Concomitant]
     Indication: DEPRESSION
  5. PERCOCET [Concomitant]

REACTIONS (2)
  - FEELING ABNORMAL [None]
  - HEART RATE INCREASED [None]
